FAERS Safety Report 14235671 (Version 1)
Quarter: 2017Q4

REPORT INFORMATION
  Report Type: Spontaneous
  Country: US (occurrence: None)
  Receive Date: 20171128
  Receipt Date: 20171128
  Transmission Date: 20180321
  Serious: Yes (Other)
  Sender: FDA-Public Use
  Company Number: None

PATIENT
  Age: 23 Year
  Sex: Female
  Weight: 52.16 kg

DRUGS (1)
  1. ENTYVIO [Suspect]
     Active Substance: VEDOLIZUMAB
     Indication: CROHN^S DISEASE
     Route: 042
     Dates: start: 20160128, end: 20171128

REACTIONS (4)
  - Disorientation [None]
  - Chest discomfort [None]
  - Loss of consciousness [None]
  - Device infusion issue [None]

NARRATIVE: CASE EVENT DATE: 20171121
